FAERS Safety Report 18811309 (Version 1)
Quarter: 2021Q1

REPORT INFORMATION
  Report Type: Spontaneous
  Country: US (occurrence: US)
  Receive Date: 20210129
  Receipt Date: 20210129
  Transmission Date: 20210419
  Serious: Yes (Death, Other)
  Sender: FDA-Public Use
  Company Number: US-GILEAD-2021-0514810

PATIENT
  Age: 61 Year
  Sex: Female

DRUGS (1)
  1. YESCARTA [Suspect]
     Active Substance: AXICABTAGENE CILOLEUCEL
     Indication: PRODUCT USED FOR UNKNOWN INDICATION
     Dosage: UNK, ONCE
     Route: 042

REACTIONS (8)
  - Rhabdomyolysis [Unknown]
  - Respiratory failure [Unknown]
  - Acute kidney injury [Unknown]
  - Disseminated intravascular coagulation [Unknown]
  - Acute myocardial infarction [Fatal]
  - Hepatic failure [Unknown]
  - Haemophagocytic lymphohistiocytosis [Unknown]
  - Cytokine release syndrome [Unknown]

NARRATIVE: CASE EVENT DATE: 20201115
